FAERS Safety Report 5036840-8 (Version None)
Quarter: 2006Q2

REPORT INFORMATION
  Report Type: 
  Country: None (occurrence: None)
  Receive Date: 20060622
  Receipt Date: 20060609
  Transmission Date: 20061013
  Serious: Yes (Other)
  Sender: FDA-Public Use
  Company Number: 2006070608

PATIENT
  Age: 73 Year
  Sex: Male
  Weight: 38.9 kg

DRUGS (4)
  1. DIFLUCAN [Suspect]
     Indication: ENCEPHALITIS
     Dosage: 400 MG (400 MG 1 IN 1 D) INTRAVENOUS
     Route: 042
     Dates: start: 20060316, end: 20060424
  2. VFEND [Suspect]
     Indication: ENCEPHALITIS
     Dosage: 320 MG (160 MG 2 IN 1 D) INTRAVENOUS
     Route: 042
     Dates: start: 20060506
  3. FUNGIZONE [Suspect]
     Indication: ENCEPHALITIS
     Dosage: 25 MG (25 MG INTRAVENOUS)
     Route: 042
     Dates: start: 20060425, end: 20060505
  4. LEVOFLOXACIN [Suspect]
     Indication: ENTEROCOLITIS
     Dosage: 300 MG (3 IN 1 D) ORAL
     Route: 048
     Dates: start: 20060523, end: 20060529

REACTIONS (5)
  - CLOSTRIDIUM DIFFICILE TOXIN TEST POSITIVE [None]
  - COLITIS PSEUDOMEMBRANOUS [None]
  - DIARRHOEA [None]
  - ENTEROCOLITIS BACTERIAL [None]
  - PYREXIA [None]
